FAERS Safety Report 7743152-8 (Version None)
Quarter: 2011Q3

REPORT INFORMATION
  Report Type: 
  Country: None (occurrence: None)
  Receive Date: 20110912
  Receipt Date: 20110829
  Transmission Date: 20111222
  Serious: Yes (Hospitalization)
  Sender: FDA-Public Use
  Company Number: US-CELGENEUS-163-21880-11083460

PATIENT
  Sex: Male

DRUGS (6)
  1. ATENOLOL [Concomitant]
     Indication: HYPERTENSION
     Route: 065
  2. PREDNISONE [Concomitant]
     Route: 065
  3. AZTREONAM [Concomitant]
     Indication: PNEUMONIA
     Route: 065
     Dates: start: 20110213, end: 20110227
  4. SYNTHROID [Concomitant]
     Indication: HYPOTHYROIDISM
     Route: 065
  5. COUMADIN [Concomitant]
     Route: 065
  6. REVLIMID [Suspect]
     Dosage: 15 MILLIGRAM
     Route: 048
     Dates: start: 20100604, end: 20110101

REACTIONS (3)
  - PSYCHOTIC DISORDER [None]
  - PNEUMONIA [None]
  - ASPIRATION [None]
